FAERS Safety Report 5234349-X (Version None)
Quarter: 2007Q1

REPORT INFORMATION
  Report Type: 
  Country: None (occurrence: None)
  Receive Date: 20070209
  Receipt Date: 20070201
  Transmission Date: 20070707
  Serious: Yes (Other)
  Sender: FDA-Public Use
  Company Number: JP-ABBOTT-07P-087-0358153-00

PATIENT
  Age: 67 Year
  Sex: Female
  Weight: 42 kg

DRUGS (15)
  1. SEVOFLURANE [Suspect]
     Indication: DRUG USE FOR UNKNOWN INDICATION
     Route: 055
  2. SEVOFLURANE [Suspect]
     Route: 055
  3. HYDROXYZINE [Concomitant]
     Indication: ANAESTHETIC PREMEDICATION
  4. ATROPINE [Concomitant]
     Indication: ANAESTHETIC PREMEDICATION
  5. FENTANYL [Concomitant]
     Indication: INDUCTION OF ANAESTHESIA
     Dosage: NOT REPORTED
  6. OXYGEN [Concomitant]
     Indication: MAINTENANCE OF ANAESTHESIA
  7. OXYGEN [Concomitant]
     Route: 055
  8. NITROUS OXIDE W/ OXYGEN [Concomitant]
     Indication: MAINTENANCE OF ANAESTHESIA
     Dosage: NOT REPORTED
  9. ISOFLURANE [Concomitant]
     Indication: MAINTENANCE OF ANAESTHESIA
     Dosage: NOT REPORTED
  10. ISOFLURANE [Concomitant]
     Route: 055
  11. THYAMIRAL [Concomitant]
     Indication: INDUCTION OF ANAESTHESIA
     Dosage: NOT REPORTED
  12. SUCCINYLCHOLINE CHLORIDE [Concomitant]
     Indication: INDUCTION OF ANAESTHESIA
     Dosage: NOT REPORTED
  13. MEPIVACAINE HCL [Concomitant]
     Indication: MAINTENANCE OF ANAESTHESIA
     Dosage: EPIDURAL INFUSION
  14. VECURONIUM BROMIDE [Concomitant]
     Indication: MAINTENANCE OF ANAESTHESIA
     Dosage: NOT REPORTED
  15. NITROGLYCERIN [Concomitant]
     Indication: CARDIOVASCULAR EVENT PROPHYLAXIS
     Dosage: NOT REPORTED

REACTIONS (1)
  - PULMONARY OEDEMA [None]
